FAERS Safety Report 4961981-0 (Version None)
Quarter: 2006Q2

REPORT INFORMATION
  Report Type: 
  Country: None (occurrence: None)
  Receive Date: 20060404
  Receipt Date: 20051013
  Transmission Date: 20061013
  Serious: Yes (Death, Other)
  Sender: FDA-Public Use
  Company Number: US-MERCK-0510USA07395

PATIENT
  Age: 71 Year
  Sex: Female
  Weight: 66 kg

DRUGS (26)
  1. VIOXX [Suspect]
     Indication: PAIN IN EXTREMITY
     Route: 048
     Dates: start: 19990101, end: 20021001
  2. VIOXX [Suspect]
     Route: 048
     Dates: start: 19990101, end: 20021001
  3. VIOXX [Suspect]
     Route: 048
     Dates: start: 19990101, end: 20021001
  4. VIOXX [Suspect]
     Indication: OSTEOARTHRITIS
     Route: 048
     Dates: start: 19990101, end: 20021001
  5. VIOXX [Suspect]
     Route: 048
     Dates: start: 19990101, end: 20021001
  6. GLUCOPHAGE [Concomitant]
     Route: 065
  7. ELAVIL [Concomitant]
     Route: 065
  8. ROCEPHIN [Concomitant]
     Route: 065
  9. HUMULIN [Concomitant]
     Route: 065
  10. HYZAAR [Concomitant]
     Route: 065
  11. TRENTAL [Concomitant]
     Route: 065
  12. DIGOXIN [Concomitant]
     Route: 065
  13. ACTOS [Concomitant]
     Route: 065
  14. CIPRO [Concomitant]
     Route: 065
  15. TICLID [Concomitant]
     Route: 065
  16. [THERAPY UNSPECIFIED] [Concomitant]
     Route: 065
  17. ECOTRIN [Concomitant]
     Route: 065
  18. FOSAMAX [Concomitant]
     Route: 065
  19. DIOVAN [Concomitant]
     Route: 065
  20. COREG [Concomitant]
     Route: 065
  21. BAYCOL [Concomitant]
     Route: 065
  22. PRAVACHOL [Concomitant]
     Route: 065
  23. LIPITOR [Concomitant]
     Route: 065
  24. ZOCOR [Concomitant]
     Route: 065
  25. LOPID [Concomitant]
     Route: 065
  26. PLAVIX [Concomitant]
     Route: 065

REACTIONS (6)
  - CORONARY ARTERY DISEASE [None]
  - DEATH [None]
  - HYPERCHOLESTEROLAEMIA [None]
  - HYPERTENSION [None]
  - MYOCARDIAL INFARCTION [None]
  - OVERDOSE [None]
